FAERS Safety Report 7470837-3 (Version None)
Quarter: 2011Q2

REPORT INFORMATION
  Report Type: 
  Country: None (occurrence: None)
  Receive Date: 20110506
  Receipt Date: 20110506
  Transmission Date: 20111010
  Serious: Yes (Life-Threatening, Disabling)
  Sender: FDA-Public Use
  Company Number: None

PATIENT
  Age: 67 Year
  Sex: Female
  Weight: 55.3388 kg

DRUGS (1)
  1. LEVOTHYROXINE SODIUM [Suspect]
     Indication: HYPOTHYROIDISM
     Dosage: TAB I QD PO
     Route: 048
     Dates: start: 20110414, end: 20110417

REACTIONS (3)
  - PAIN [None]
  - MUSCLE CONTRACTIONS INVOLUNTARY [None]
  - MUSCLE DISORDER [None]
